FAERS Safety Report 6551371-1 (Version None)
Quarter: 2010Q1

REPORT INFORMATION
  Report Type: 
  Country: None (occurrence: None)
  Receive Date: 20100120
  Receipt Date: 20100108
  Transmission Date: 20100710
  Serious: Yes (Other)
  Sender: FDA-Public Use
  Company Number: 230527J08CAN

PATIENT
  Age: 26 Year
  Sex: Female

DRUGS (6)
  1. REBIF [Suspect]
     Indication: RELAPSING-REMITTING MULTIPLE SCLEROSIS
     Dosage: 44 MCG, 3 IN 1 WEEKS
     Dates: start: 20080527, end: 20090402
  2. CILEST [Concomitant]
  3. DIMENHYDRINATE [Concomitant]
  4. IBUPROFEN [Concomitant]
  5. XANAX [XANAX] (ALPRAZOLAM) [Concomitant]
  6. BACLOFEN [Concomitant]

REACTIONS (13)
  - CAESAREAN SECTION [None]
  - CRYING [None]
  - EMOTIONAL DISORDER [None]
  - FATIGUE [None]
  - INCREASED APPETITE [None]
  - INJECTION SITE ERYTHEMA [None]
  - INJECTION SITE PAIN [None]
  - INJECTION SITE SWELLING [None]
  - MULTIPLE SCLEROSIS RELAPSE [None]
  - NAUSEA [None]
  - PATERNAL DRUGS AFFECTING FOETUS [None]
  - PREGNANCY [None]
  - WEIGHT DECREASED [None]
